FAERS Safety Report 8368881-7 (Version None)
Quarter: 2012Q2

REPORT INFORMATION
  Report Type: 
  Country: None (occurrence: None)
  Receive Date: 20120516
  Receipt Date: 20120502
  Transmission Date: 20120825
  Serious: Yes (Hospitalization)
  Sender: FDA-Public Use
  Company Number: UTC-018371

PATIENT
  Age: 56 Year
  Sex: Female
  Weight: 117.9 kg

DRUGS (5)
  1. DIURETICS (DIURETICS) [Concomitant]
  2. COUMADIN [Concomitant]
  3. TRACLEER [Suspect]
  4. REMODULIN [Suspect]
     Indication: PULMONARY ARTERIAL HYPERTENSION
     Dosage: 28.8 UG/KG (0.02 UG/KG, 1 IN 1 MIN), SUBCUTANEOUS
     Route: 058
     Dates: start: 20120218
  5. ADCIRCA [Suspect]

REACTIONS (2)
  - FLUID RETENTION [None]
  - INFUSION SITE INFECTION [None]
